FAERS Safety Report 4421214-0 (Version None)
Quarter: 2004Q3

REPORT INFORMATION
  Report Type: 
  Country: None (occurrence: None)
  Receive Date: 20040707
  Receipt Date: 20040412
  Transmission Date: 20050211
  Serious: No
  Sender: FDA-Public Use
  Company Number: SU-2004-002284

PATIENT
  Age: 65 Year
  Sex: Male
  Weight: 72.5755 kg

DRUGS (5)
  1. BENICAR HCT [Suspect]
     Indication: HYPERTENSION
     Dosage: 40.25 MG QD PO
     Route: 048
     Dates: start: 20040327, end: 20040330
  2. K-DUR 10 [Concomitant]
  3. DILTIAZEM [Concomitant]
  4. TRICOR [Concomitant]
  5. FISH OIL [Concomitant]

REACTIONS (1)
  - SWELLING FACE [None]
